FAERS Safety Report 24645033 (Version 2)
Quarter: 2024Q4

REPORT INFORMATION
  Report Type: Report from Study
  Country: US (occurrence: US)
  Receive Date: 20241121
  Receipt Date: 20241205
  Transmission Date: 20250114
  Serious: No
  Sender: KYOWA
  Company Number: US-KYOWAKIRIN-2024KK026087

PATIENT

DRUGS (2)
  1. BUROSUMAB [Suspect]
     Active Substance: BUROSUMAB
     Indication: Hereditary hypophosphataemic rickets
     Dosage: 60 MG, 1X/4 WEEKS
     Route: 058
     Dates: start: 202209
  2. BUROSUMAB [Suspect]
     Active Substance: BUROSUMAB
     Indication: Hereditary hypophosphataemic rickets
     Dosage: 60 MG, 1X/4 WEEKS
     Route: 065
     Dates: start: 20240725

REACTIONS (5)
  - Condition aggravated [Unknown]
  - Fracture [Recovered/Resolved]
  - Pain in extremity [Recovering/Resolving]
  - Pain in extremity [Recovering/Resolving]
  - Emergency care [Unknown]

NARRATIVE: CASE EVENT DATE: 20240101
